FAERS Safety Report 15902753 (Version 1)
Quarter: 2019Q1

REPORT INFORMATION
  Report Type: Spontaneous
  Country: ES (occurrence: ES)
  Receive Date: 20190202
  Receipt Date: 20190202
  Transmission Date: 20190417
  Serious: Yes (Hospitalization, Other)
  Sender: FDA-Public Use
  Company Number: ES-MICRO LABS LIMITED-ML2019-00113

PATIENT
  Age: 88 Year
  Sex: Male

DRUGS (2)
  1. CLINDAMYCIN. [Suspect]
     Active Substance: CLINDAMYCIN
  2. CEFDITOREN [Suspect]
     Active Substance: CEFDITOREN

REACTIONS (2)
  - Drug ineffective [Unknown]
  - Pathogen resistance [Unknown]
